FAERS Safety Report 6217717-9 (Version None)
Quarter: 2009Q2

REPORT INFORMATION
  Report Type: 
  Country: None (occurrence: None)
  Receive Date: 20090608
  Receipt Date: 20071107
  Transmission Date: 20091009
  Serious: Yes (Other)
  Sender: FDA-Public Use
  Company Number: US-ASTRAZENECA-2006UW21290

PATIENT
  Age: 15266 Day
  Sex: Female
  Weight: 106.6 kg

DRUGS (31)
  1. SEROQUEL [Suspect]
     Indication: POST-TRAUMATIC STRESS DISORDER
     Dosage: 25-600MG
     Route: 048
     Dates: start: 19990615
  2. SEROQUEL [Suspect]
     Indication: DEPRESSION
     Dosage: 25-600MG
     Route: 048
     Dates: start: 19990615
  3. SEROQUEL [Suspect]
     Indication: SLEEP DISORDER
     Dosage: 25-600MG
     Route: 048
     Dates: start: 19990615
  4. SEROQUEL [Suspect]
     Indication: HALLUCINATION
     Dosage: 25-600MG
     Route: 048
     Dates: start: 19990615
  5. FUROSEMIDE [Concomitant]
     Route: 048
     Dates: start: 19990706
  6. VALIUM [Concomitant]
     Route: 048
     Dates: start: 19990707
  7. PREMARIN [Concomitant]
     Dosage: 0.625-1.25 MG
     Route: 048
     Dates: start: 19930309
  8. ELAVIL [Concomitant]
     Dosage: 25-200 MG
     Route: 048
     Dates: start: 19920104
  9. REMERON [Concomitant]
     Route: 048
     Dates: start: 19990706
  10. NEURONTIN [Concomitant]
     Dosage: 600-1800 MG
     Route: 048
     Dates: start: 19990706
  11. PROZAC [Concomitant]
     Dosage: 20-40 MG
     Route: 048
     Dates: start: 19980625
  12. AMBIEN [Concomitant]
     Dosage: 10-20 MG
     Route: 048
     Dates: start: 19990915
  13. FLEXERIL [Concomitant]
     Route: 048
  14. VIOXX [Concomitant]
     Dates: start: 20010325
  15. CELEXA [Concomitant]
     Route: 048
     Dates: start: 19980707
  16. ENALAPRIL [Concomitant]
     Dates: start: 20041109
  17. VISTARIL [Concomitant]
     Dosage: 100-200 MG
     Route: 048
     Dates: start: 19990707
  18. ULTRAM [Concomitant]
     Route: 048
     Dates: start: 19990707
  19. ABILIFY [Concomitant]
     Route: 048
     Dates: start: 20030204
  20. VENLAFAXINE HCL [Concomitant]
     Dosage: 150-300 MG
     Route: 048
     Dates: start: 20030204
  21. REGLAN [Concomitant]
     Route: 048
     Dates: start: 20041229
  22. BUPROPION HCL [Concomitant]
     Dates: start: 20041220
  23. GLIPIZIDE [Concomitant]
     Route: 048
     Dates: start: 20041229
  24. SOMA [Concomitant]
     Dosage: 600-1200 MG
     Route: 048
     Dates: start: 20030714
  25. CEFTIN [Concomitant]
     Route: 048
     Dates: start: 20041229
  26. HALDOL [Concomitant]
     Dosage: 5-7.5 MG
     Route: 048
     Dates: start: 19930701
  27. ROBAXIN [Concomitant]
     Dates: start: 20050601
  28. PROTONIX [Concomitant]
     Dates: start: 20030121
  29. BACLOFEN [Concomitant]
     Dates: start: 20050406
  30. PRINIVIL [Concomitant]
     Dates: start: 20050101
  31. CEFAZOLIN [Concomitant]
     Route: 042
     Dates: start: 20041229

REACTIONS (6)
  - BLOOD GLUCOSE INCREASED [None]
  - DIABETES MELLITUS [None]
  - DIABETES MELLITUS INADEQUATE CONTROL [None]
  - DIABETIC NEUROPATHY [None]
  - DIABETIC ULCER [None]
  - TYPE 1 DIABETES MELLITUS [None]
